FAERS Safety Report 8126552-6 (Version None)
Quarter: 2012Q1

REPORT INFORMATION
  Report Type: 
  Country: None (occurrence: None)
  Receive Date: 20120210
  Receipt Date: 20120202
  Transmission Date: 20120608
  Serious: Yes (Hospitalization, Other)
  Sender: FDA-Public Use
  Company Number: AR-AMGEN-ARGSP2012007986

PATIENT
  Age: 79 Year
  Sex: Female

DRUGS (4)
  1. FOLIC ACID [Concomitant]
     Dosage: UNK
     Route: 048
  2. METHOTREXATE [Concomitant]
     Dosage: UNK
     Route: 048
  3. ENBREL [Suspect]
     Indication: RHEUMATOID ARTHRITIS
     Dosage: 50MG EVERY 20 DAYS
     Route: 058
     Dates: start: 20060728, end: 20120101
  4. CALCIUM [Concomitant]
     Dosage: UNK
     Route: 048

REACTIONS (2)
  - FALL [None]
  - FEMUR FRACTURE [None]
